FAERS Safety Report 26059545 (Version 1)
Quarter: 2025Q4

REPORT INFORMATION
  Report Type: Spontaneous
  Country: US (occurrence: US)
  Receive Date: 20251118
  Receipt Date: 20251118
  Transmission Date: 20260118
  Serious: No
  Sender: NANTKWEST
  Company Number: US-NantWorks-2025-US-NANT-00060

PATIENT
  Sex: Male

DRUGS (1)
  1. ANKTIVA [Suspect]
     Active Substance: NOGAPENDEKIN ALFA INBAKICEPT-PMLN
     Indication: Product used for unknown indication
     Dosage: DATES OF FIRST AND LAST DOSE PRIOR TO EVENT ONSET WERE NOT PROVIDED. THE PATIENT RECEIVED THE FIFTH
     Route: 043

REACTIONS (1)
  - Bladder spasm [Unknown]
